FAERS Safety Report 23688332 (Version 1)
Quarter: 2024Q1

REPORT INFORMATION
  Report Type: Spontaneous
  Country: JP (occurrence: JP)
  Receive Date: 20240329
  Receipt Date: 20240329
  Transmission Date: 20240410
  Serious: Yes (Hospitalization, Other)
  Sender: FDA-Public Use
  Company Number: JP-BRISTOL-MYERS SQUIBB COMPANY-2024-048704

PATIENT

DRUGS (7)
  1. LENADEX [Suspect]
     Active Substance: DEXAMETHASONE ACETATE
     Indication: Increased appetite
     Dosage: 2MG/DAY
     Route: 048
  2. LENADEX [Suspect]
     Active Substance: DEXAMETHASONE ACETATE
     Dosage: 1MG/DAY
     Route: 048
  3. LENADEX [Suspect]
     Active Substance: DEXAMETHASONE ACETATE
     Dosage: 2MG/DAY
     Route: 048
  4. OPDIVO [Suspect]
     Active Substance: NIVOLUMAB
     Indication: Product used for unknown indication
  5. RAMUCIRUMAB [Suspect]
     Active Substance: RAMUCIRUMAB
     Indication: Product used for unknown indication
  6. PACLITAXEL [Suspect]
     Active Substance: PACLITAXEL
     Indication: Product used for unknown indication
  7. UNSPECIFIED INGREDIENT [Concomitant]
     Active Substance: UNSPECIFIED INGREDIENT
     Indication: Product used for unknown indication

REACTIONS (10)
  - Malignant neoplasm progression [Unknown]
  - Hypopituitarism [Recovered/Resolved]
  - Decreased appetite [Recovering/Resolving]
  - Tri-iodothyronine decreased [Recovered/Resolved]
  - Thyroxine decreased [Recovered/Resolved]
  - Cortisol decreased [Recovered/Resolved]
  - Blood corticotrophin decreased [Recovered/Resolved]
  - Physical deconditioning [Unknown]
  - Intra-abdominal fluid collection [Unknown]
  - Off label use [Unknown]
